FAERS Safety Report 7934062-1 (Version None)
Quarter: 2011Q4

REPORT INFORMATION
  Report Type: 
  Country: None (occurrence: None)
  Receive Date: 20111122
  Receipt Date: 20111107
  Transmission Date: 20120403
  Serious: Yes (Hospitalization)
  Sender: FDA-Public Use
  Company Number: US-ROCHE-655018

PATIENT

DRUGS (5)
  1. CARBOPLATIN [Suspect]
     Indication: BREAST CANCER
     Dosage: 2 AUC, DAYS1,8,15
     Route: 042
  2. HERCEPTIN [Suspect]
     Indication: BREAST CANCER
     Dosage: 4 MG/KG, X1
     Route: 042
  3. HERCEPTIN [Suspect]
     Dosage: 2 MG/KG, UNK
     Route: 042
  4. PACLITAXEL [Suspect]
     Indication: BREAST CANCER
     Dosage: 80 MG/M2, DAYS1,8,15
     Route: 042
  5. AVASTIN [Suspect]
     Indication: BREAST CANCER
     Dosage: 10 MG/KG, DAYS 1+AMP;15
     Route: 042

REACTIONS (19)
  - FATIGUE [None]
  - WHEEZING [None]
  - ISCHAEMIC CARDIOMYOPATHY [None]
  - LEFT VENTRICULAR DYSFUNCTION [None]
  - NAUSEA [None]
  - LEUKOPENIA [None]
  - DEHYDRATION [None]
  - HYPOPHAGIA [None]
  - NEUTROPENIA [None]
  - HYPONATRAEMIA [None]
  - DIARRHOEA [None]
  - VOMITING [None]
  - CONSTIPATION [None]
  - HYPOPHOSPHATAEMIA [None]
  - URINARY TRACT INFECTION [None]
  - DECREASED APPETITE [None]
  - ACUTE PRERENAL FAILURE [None]
  - HYPOGLYCAEMIA [None]
  - HYPOXIA [None]
